FAERS Safety Report 19808219 (Version 1)
Quarter: 2021Q3

REPORT INFORMATION
  Report Type: Spontaneous
  Country: US (occurrence: US)
  Receive Date: 20210908
  Receipt Date: 20210908
  Transmission Date: 20211014
  Serious: Yes (Hospitalization, Other)
  Sender: FDA-Public Use
  Company Number: None

PATIENT
  Age: 76 Year
  Sex: Female
  Weight: 52.2 kg

DRUGS (1)
  1. YESCARTA [Suspect]
     Active Substance: AXICABTAGENE CILOLEUCEL
     Indication: FOLLICULAR LYMPHOMA
     Dosage: ?          OTHER FREQUENCY:ONCE;?
     Route: 042
     Dates: start: 20210712, end: 20210712

REACTIONS (9)
  - Blood fibrinogen decreased [None]
  - Acute kidney injury [None]
  - Delirium [None]
  - Neurotoxicity [None]
  - Cytokine release syndrome [None]
  - Lymphocyte adoptive therapy [None]
  - Transfusion [None]
  - Transaminases increased [None]
  - Fall [None]

NARRATIVE: CASE EVENT DATE: 20210716
